FAERS Safety Report 7536549-2 (Version None)
Quarter: 2011Q2

REPORT INFORMATION
  Report Type: 
  Country: None (occurrence: None)
  Receive Date: 20110608
  Receipt Date: 20110608
  Transmission Date: 20111010
  Serious: Yes (Hospitalization)
  Sender: FDA-Public Use
  Company Number: None

PATIENT
  Sex: Female
  Weight: 96.3 kg

DRUGS (7)
  1. ISOSORBIDE [Concomitant]
  2. TAXOL [Suspect]
     Dosage: 870 MG
  3. BEVACIZUMAB (RHUMAB VEGF) [Suspect]
     Dosage: 1540 MG
  4. AMITRIPTYLINE HYDROCHLORIDE [Concomitant]
  5. CARBOPLATIN [Suspect]
     Dosage: 861 MG
  6. METFORMIN HCL [Concomitant]
  7. LORTAB [Concomitant]

REACTIONS (9)
  - CARDIOMYOPATHY [None]
  - PULMONARY EMBOLISM [None]
  - VOMITING [None]
  - HYPERHIDROSIS [None]
  - PAIN IN JAW [None]
  - CHEST PAIN [None]
  - LEFT VENTRICULAR HYPERTROPHY [None]
  - INFUSION RELATED REACTION [None]
  - ELECTROCARDIOGRAM POOR R-WAVE PROGRESSION [None]
